FAERS Safety Report 8999547 (Version 1)
Quarter: 2013Q1

REPORT INFORMATION
  Report Type: Spontaneous
  Country: US (occurrence: US)
  Receive Date: 20130103
  Receipt Date: 20130103
  Transmission Date: 20140127
  Serious: No
  Sender: FDA-Public Use
  Company Number: US-ASTRAZENECA-2012SE28223

PATIENT
  Age: 52 Year
  Sex: Female
  Weight: 108 kg

DRUGS (6)
  1. SEROQUEL [Suspect]
     Indication: BIPOLAR I DISORDER
     Route: 048
     Dates: start: 2001
  2. SEROQUEL [Suspect]
     Indication: BIPOLAR I DISORDER
     Route: 048
     Dates: start: 2004
  3. SEROQUEL [Suspect]
     Indication: BIPOLAR I DISORDER
     Route: 048
  4. NEXIUM [Suspect]
     Route: 048
  5. LYRICA [Concomitant]
     Indication: DIABETIC NEUROPATHY
  6. NORVASC [Concomitant]
     Indication: HYPERTENSION

REACTIONS (5)
  - Malaise [Unknown]
  - Insomnia [Unknown]
  - Tremor [Unknown]
  - Intentional drug misuse [Unknown]
  - Drug prescribing error [Unknown]
